FAERS Safety Report 6307881-5 (Version None)
Quarter: 2009Q3

REPORT INFORMATION
  Report Type: 
  Country: None (occurrence: None)
  Receive Date: 20090813
  Receipt Date: 20090806
  Transmission Date: 20100115
  Serious: Yes (Other)
  Sender: FDA-Public Use
  Company Number: US-ABBOTT-09P-163-0589943-00

PATIENT
  Sex: Female
  Weight: 122.58 kg

DRUGS (8)
  1. HUMIRA [Suspect]
     Indication: RHEUMATOID ARTHRITIS
     Dates: start: 20090206, end: 20090601
  2. HUMIRA [Suspect]
     Dates: start: 20090801
  3. PREDNISONE [Concomitant]
     Indication: RHEUMATOID ARTHRITIS
  4. CYMBALTA [Concomitant]
     Indication: DEPRESSION
  5. COZAAR [Concomitant]
     Indication: HYPERTENSION
  6. FOLIC ACID [Concomitant]
     Indication: RHEUMATOID ARTHRITIS
  7. MULTIPLE VITAMINS [Concomitant]
     Indication: ROUTINE HEALTH MAINTENANCE
  8. ASPIRIN [Concomitant]
     Indication: PAIN

REACTIONS (1)
  - ROTATOR CUFF SYNDROME [None]
